FAERS Safety Report 18349120 (Version 1)
Quarter: 2020Q4

REPORT INFORMATION
  Report Type: Spontaneous
  Country: DE (occurrence: DE)
  Receive Date: 20201006
  Receipt Date: 20201006
  Transmission Date: 20210114
  Serious: Yes (Other)
  Sender: FDA-Public Use
  Company Number: DE-BAYER-2020-215344

PATIENT
  Sex: Female

DRUGS (2)
  1. VITRAKVI [Suspect]
     Active Substance: LAROTRECTINIB
     Indication: METASTASES TO LIVER
     Dosage: CAPSULES
     Route: 048
  2. VITRAKVI [Suspect]
     Active Substance: LAROTRECTINIB
     Indication: NEOPLASM
     Dosage: SOLUTION
     Route: 048

REACTIONS (1)
  - Metastatic neoplasm [None]
